FAERS Safety Report 4953759-9 (Version None)
Quarter: 2006Q1

REPORT INFORMATION
  Report Type: 
  Country: None (occurrence: None)
  Receive Date: 20060323
  Receipt Date: 20060323
  Transmission Date: 20060701
  Serious: Yes (Life-Threatening)
  Sender: FDA-Public Use
  Company Number: None

PATIENT
  Age: 59 Year
  Sex: Male
  Weight: 68.0396 kg

DRUGS (5)
  1. DETROL LA [Suspect]
     Indication: MICTURITION URGENCY
     Dosage: 4 MG   ONCE DAILY  PO
     Route: 048
     Dates: start: 20060317, end: 20060319
  2. VERAPAMIL [Concomitant]
  3. AVAPRO [Concomitant]
  4. LIPITOR [Concomitant]
  5. INSULIN -NOVALOG 70/30 [Concomitant]

REACTIONS (7)
  - ANGINA PECTORIS [None]
  - ANURIA [None]
  - CATHETER RELATED COMPLICATION [None]
  - DEHYDRATION [None]
  - DYSPNOEA [None]
  - PHARMACEUTICAL PRODUCT COMPLAINT [None]
  - PROCEDURAL PAIN [None]
